FAERS Safety Report 8455781 (Version 8)
Quarter: 2013Q2

REPORT INFORMATION
  Report Type: Report from Study
  Country: CA (occurrence: CA)
  Receive Date: 20120313
  Receipt Date: 20130515
  Transmission Date: 20140414
  Serious: Yes (Hospitalization, Other)
  Sender: FDA-Public Use
  Company Number: CA-CELGENEUS-028-C5013-12012779

PATIENT
  Age: 87 Year
  Sex: Male
  Weight: 75 kg

DRUGS (45)
  1. CC-5013 [Suspect]
     Indication: PLASMA CELL MYELOMA
     Dosage: 10 MILLIGRAM
     Route: 048
     Dates: start: 20100622
  2. CC-5013 [Suspect]
     Dosage: 10 MILLIGRAM
     Route: 048
     Dates: start: 20120104, end: 20120124
  3. DEXAMETHASONE [Suspect]
     Indication: PLASMA CELL MYELOMA
     Dosage: 20 MILLIGRAM
     Route: 065
     Dates: start: 20100622
  4. DEXAMETHASONE [Suspect]
     Dosage: 20 MILLIGRAM
     Route: 065
     Dates: start: 20120104, end: 20120111
  5. WARFARIN [Concomitant]
     Indication: THROMBOSIS PROPHYLAXIS
     Dosage: 2.5-5MG
     Route: 048
  6. WARFARIN [Concomitant]
     Route: 048
     Dates: start: 20070321
  7. SIMVASTATIN [Concomitant]
     Indication: DYSLIPIDAEMIA
     Dosage: 20 MILLIGRAM
     Route: 048
     Dates: start: 20051018
  8. ACETYLSALICYLIC ACID [Concomitant]
     Indication: CORONARY ARTERY DISEASE
     Dosage: 81 MILLIGRAM
     Route: 048
     Dates: start: 20051123
  9. ESOMEPRAZOLE [Concomitant]
     Indication: PROPHYLAXIS AGAINST GASTROINTESTINAL ULCER
     Dosage: 40 MILLIGRAM
     Route: 048
     Dates: start: 20070502
  10. PSYLLIUM [Concomitant]
     Indication: CONSTIPATION
     Dosage: 1 DOSAGE FORMS
     Route: 048
     Dates: start: 200806
  11. CITALOPRAM [Concomitant]
     Indication: DEPRESSION
     Dosage: 10 MILLIGRAM
     Route: 048
     Dates: start: 20100802, end: 20100909
  12. CITALOPRAM [Concomitant]
     Dosage: 20 MILLIGRAM
     Route: 048
     Dates: start: 20100909
  13. DRONEDARON [Concomitant]
     Indication: ATRIAL FIBRILLATION
     Dosage: 800 MILLIGRAM
     Route: 048
     Dates: start: 20100917
  14. FUROSEMIDE [Concomitant]
     Indication: OEDEMA PERIPHERAL
     Dosage: 20 MILLIGRAM
     Route: 048
     Dates: start: 20100710, end: 20100710
  15. FUROSEMIDE [Concomitant]
     Indication: PROPHYLAXIS
     Dosage: 20 MILLIGRAM
     Route: 048
  16. FUROSEMIDE [Concomitant]
     Indication: FLUID OVERLOAD
     Dosage: 20 MILLIGRAM
     Route: 048
     Dates: start: 20100930, end: 20101009
  17. FUROSEMIDE [Concomitant]
     Dosage: 20 MILLIGRAM
     Route: 048
     Dates: start: 20101019, end: 20110426
  18. FUROSEMIDE [Concomitant]
     Dosage: 10 MILLIGRAM
     Route: 048
     Dates: start: 20110519
  19. FUROSEMIDE [Concomitant]
     Dosage: 10 MILLIGRAM
     Route: 041
     Dates: start: 20120131, end: 20120131
  20. ASA [Concomitant]
     Indication: PRODUCT USED FOR UNKNOWN INDICATION
     Route: 065
  21. DILTIAZEM [Concomitant]
     Indication: HYPERTENSION
     Dosage: 120 MILLIGRAM
     Route: 048
     Dates: start: 20060411, end: 20100711
  22. DILTIAZEM [Concomitant]
     Dosage: 60 MILLIGRAM
     Route: 048
     Dates: start: 20100714, end: 20100914
  23. CANDESARTAN W/HYDROCHLOROTHIAZIDE [Concomitant]
     Indication: HYPERTENSION
     Dosage: 16-12.5MG
     Route: 048
     Dates: start: 20051104, end: 20100803
  24. LINSEED [Concomitant]
     Indication: CONSTIPATION
     Route: 048
     Dates: start: 20080602, end: 20101105
  25. GARLIC [Concomitant]
     Indication: SUPPLEMENTATION THERAPY
     Dosage: 1 CAPSULE
     Route: 048
     Dates: start: 2005, end: 201011
  26. PAMIDRONATE [Concomitant]
     Indication: BONE LESION
     Dosage: 90 MILLIGRAM
     Route: 065
     Dates: start: 20100707, end: 20110406
  27. CARBOCAL D [Concomitant]
     Indication: CALCIUM DEFICIENCY
     Dosage: 500-400MG
     Dates: start: 20100623, end: 20110426
  28. VITAMIN K [Concomitant]
     Indication: COAGULOPATHY
     Dosage: 5 MILLIGRAM
     Route: 065
     Dates: start: 20100710, end: 20100710
  29. HEPARIN [Concomitant]
     Indication: THROMBOSIS PROPHYLAXIS
     Dosage: 5000 IU (INTERNATIONAL UNIT)
     Route: 065
     Dates: start: 20100712, end: 20100713
  30. FLU [Concomitant]
     Indication: INFECTION PROPHYLAXIS
     Route: 065
     Dates: start: 20101103, end: 20101103
  31. DALTEPARIN [Concomitant]
     Indication: THROMBOSIS PROPHYLAXIS
     Dosage: 10000 IU (INTERNATIONAL UNIT)
     Route: 065
     Dates: start: 20100917, end: 20100919
  32. DOCUSATE [Concomitant]
     Indication: CONSTIPATION
     Route: 048
     Dates: start: 20101105, end: 20110329
  33. DOCUSATE [Concomitant]
     Dosage: 200 MILLIGRAM
     Route: 048
     Dates: start: 20120127
  34. SENNOSIDE [Concomitant]
     Indication: CONSTIPATION
     Route: 048
     Dates: start: 20110104, end: 20110329
  35. SENNOSIDE [Concomitant]
     Dosage: 17.2 MILLIGRAM
     Route: 048
     Dates: start: 20120128, end: 20120209
  36. SENNOSIDE [Concomitant]
     Dosage: 8.6 MILLIGRAM
     Route: 048
     Dates: start: 20120211
  37. POTASSIUM CHLORIDE [Concomitant]
     Indication: HYPOKALAEMIA
     Dosage: 8 MILLIEQUIVALENTS
     Route: 002
     Dates: start: 20120126, end: 20120201
  38. POTASSIUM CHLORIDE [Concomitant]
     Dosage: 16 MILLIEQUIVALENTS
     Route: 002
     Dates: start: 20120201, end: 20120328
  39. AZITHROMYCINE [Concomitant]
     Indication: LUNG INFECTION
     Dosage: 250 MILLIGRAM
     Route: 048
     Dates: start: 20120123, end: 20120127
  40. ACETAMINOPHEN [Concomitant]
     Indication: BACK PAIN
     Dosage: 650 MILLIGRAM
     Route: 048
     Dates: start: 20120126, end: 20120220
  41. BISACODYL [Concomitant]
     Indication: CONSTIPATION
     Dosage: 10 MILLIGRAM
     Route: 054
     Dates: start: 20120128, end: 20120128
  42. ERYTHROPOIETIN [Concomitant]
     Indication: ANAEMIA
     Dosage: 10000 IU (INTERNATIONAL UNIT)
     Route: 058
     Dates: start: 20120131, end: 20120221
  43. TINZAPARIN [Concomitant]
     Indication: THROMBOSIS PROPHYLAXIS
     Dosage: 12000 IU (INTERNATIONAL UNIT)
     Route: 058
     Dates: start: 20120216, end: 20120219
  44. FERREX SULFATE [Concomitant]
     Indication: IRON DEFICIENCY ANAEMIA
     Dosage: 150 MILLIGRAM
     Route: 048
     Dates: start: 20120126, end: 20120129
  45. AZOTH LIQUID [Concomitant]
     Indication: SKIN MASS
     Route: 065
     Dates: start: 201111, end: 201111

REACTIONS (3)
  - Squamous cell carcinoma of skin [Recovered/Resolved]
  - Squamous cell carcinoma of skin [Recovered/Resolved]
  - Fall [Recovering/Resolving]
